FAERS Safety Report 22299404 (Version 1)
Quarter: 2023Q2

REPORT INFORMATION
  Report Type: Report from Study
  Country: GB (occurrence: GB)
  Receive Date: 20230509
  Receipt Date: 20230509
  Transmission Date: 20230722
  Serious: Yes (Other)
  Sender: FDA-Public Use
  Company Number: GB-002147023-NVSC2023GB102388

PATIENT
  Age: 70 Year
  Sex: Female

DRUGS (1)
  1. ERELZI [Suspect]
     Active Substance: ETANERCEPT-SZZS
     Indication: Psoriatic arthropathy
     Dosage: 50 MG (OTHER DOSAGE: 50MG/1ML)
     Route: 065

REACTIONS (2)
  - Lung neoplasm malignant [Unknown]
  - Mental impairment [Unknown]
